FAERS Safety Report 19224900 (Version 1)
Quarter: 2021Q2

REPORT INFORMATION
  Report Type: Spontaneous
  Country: JP (occurrence: JP)
  Receive Date: 20210506
  Receipt Date: 20210506
  Transmission Date: 20210717
  Serious: Yes (Other)
  Sender: FDA-Public Use
  Company Number: JP-ACCORD-224248

PATIENT
  Age: 64 Year
  Sex: Male

DRUGS (5)
  1. TACROLIMUS. [Suspect]
     Active Substance: TACROLIMUS
     Indication: ULCERATIVE KERATITIS
     Route: 061
  2. BETAMETHASONE. [Suspect]
     Active Substance: BETAMETHASONE
     Indication: ULCERATIVE KERATITIS
     Dosage: 4 HOURS
     Route: 061
  3. GATIFLOXACIN. [Concomitant]
     Active Substance: GATIFLOXACIN
     Indication: ULCERATIVE KERATITIS
  4. BETAMETHASONE. [Suspect]
     Active Substance: BETAMETHASONE
     Indication: ULCERATIVE KERATITIS
     Route: 061
  5. CICLOSPORIN [Suspect]
     Active Substance: CYCLOSPORINE
     Indication: ULCERATIVE KERATITIS

REACTIONS (3)
  - Cytomegalovirus infection [Recovered/Resolved]
  - Corneal endotheliitis [Recovered/Resolved]
  - Corneal degeneration [Recovered/Resolved]
